FAERS Safety Report 4423461-0 (Version None)
Quarter: 2004Q3

REPORT INFORMATION
  Report Type: 
  Country: None (occurrence: None)
  Receive Date: 20040806
  Receipt Date: 20040721
  Transmission Date: 20050211
  Serious: Yes (Other)
  Sender: FDA-Public Use
  Company Number: IT-2004-029119

PATIENT
  Sex: Female

DRUGS (3)
  1. CLIMARA [Suspect]
     Indication: HORMONE REPLACEMENT THERAPY
     Dosage: 50 UG/DAY, CONT, 1 PATCH/WEEK, TRANSDERMAL
     Route: 062
  2. MEDROXYPROGESTERONE ACETATE [Suspect]
     Indication: HORMONE REPLACEMENT THERAPY
     Dosage: 10 MG/D, FIRST 12 DAYS/MONTH, ORAL
     Route: 048
  3. FENRETINIDE (FENRETINIDE) [Concomitant]

REACTIONS (1)
  - BREAST CANCER FEMALE [None]
